FAERS Safety Report 10695241 (Version 1)
Quarter: 2015Q1

REPORT INFORMATION
  Report Type: Spontaneous
  Country: US (occurrence: None)
  Receive Date: 20150106
  Receipt Date: 20150106
  Transmission Date: 20150721
  Serious: Yes (Life-Threatening, Disabling)
  Sender: FDA-Public Use
  Company Number: None

PATIENT
  Age: 61 Year
  Sex: Female
  Weight: 49.9 kg

DRUGS (3)
  1. LEVAQUIN [Suspect]
     Active Substance: LEVOFLOXACIN
  2. LEVAQUIN [Suspect]
     Active Substance: LEVOFLOXACIN
     Indication: UPPER-AIRWAY COUGH SYNDROME
  3. CIPRO [Suspect]
     Active Substance: CIPROFLOXACIN HYDROCHLORIDE

REACTIONS (8)
  - Asthenia [None]
  - Gastrointestinal disorder [None]
  - Panic attack [None]
  - Tremor [None]
  - Alopecia [None]
  - Anxiety [None]
  - Infrequent bowel movements [None]
  - Weight decreased [None]

NARRATIVE: CASE EVENT DATE: 20140507
